FAERS Safety Report 18932245 (Version 4)
Quarter: 2021Q1

REPORT INFORMATION
  Report Type: Spontaneous
  Country: US (occurrence: US)
  Receive Date: 20210224
  Receipt Date: 20210311
  Transmission Date: 20210420
  Serious: Yes (Hospitalization, Other)
  Sender: FDA-Public Use
  Company Number: US-SA-2021SA060884

PATIENT
  Age: 60 Year
  Sex: Male

DRUGS (1)
  1. CABLIVI [Suspect]
     Active Substance: CAPLACIZUMAB-YHDP
     Indication: THROMBOTIC MICROANGIOPATHY
     Dosage: 11MG, QD
     Route: 058
     Dates: start: 20210202

REACTIONS (4)
  - Platelet count decreased [Unknown]
  - Thrombotic thrombocytopenic purpura [Unknown]
  - ADAMTS13 activity decreased [Unknown]
  - Injection site erythema [Unknown]

NARRATIVE: CASE EVENT DATE: 202102
